FAERS Safety Report 5205742-6 (Version None)
Quarter: 2007Q1

REPORT INFORMATION
  Report Type: 
  Country: None (occurrence: None)
  Receive Date: 20070105
  Receipt Date: 20070105
  Transmission Date: 20070707
  Serious: Yes (Hospitalization)
  Sender: FDA-Public Use
  Company Number: None

PATIENT
  Sex: Male
  Weight: 74.8435 kg

DRUGS (15)
  1. FUROSEMIDE [Suspect]
     Indication: CARDIAC FAILURE CONGESTIVE
     Dosage: 120 MG AND 80 MG QAM AND Q PM PO
     Route: 048
     Dates: start: 20060301
  2. FUROSEMIDE [Suspect]
     Indication: CARDIAC FAILURE CONGESTIVE
     Dosage: 120 MG AND 80 MG QAM AND Q PM PO
     Route: 048
     Dates: start: 20060906
  3. ISOSORBIDE MONONITRATE SA [Concomitant]
  4. POTASSIUM CHLORIDE [Concomitant]
  5. LORATADINE [Concomitant]
  6. FLUNISOLIDE INH [Concomitant]
  7. SIMVASTATIN [Concomitant]
  8. FERROUS SULFATE TAB [Concomitant]
  9. ALLOPURINOL SODIUM [Concomitant]
  10. HYDRALAZINE HCL [Concomitant]
  11. MIRTAZAPINE [Concomitant]
  12. DOCUSATE [Concomitant]
  13. METOPROLOL TARTRATE [Concomitant]
  14. ASPIRIN [Concomitant]
  15. LORAZEPAM [Concomitant]

REACTIONS (7)
  - CHEST DISCOMFORT [None]
  - CHILLS [None]
  - COUGH [None]
  - PYREXIA [None]
  - RENAL FAILURE ACUTE [None]
  - VIRAL INFECTION [None]
  - WEIGHT INCREASED [None]
